FAERS Safety Report 6238691-5 (Version None)
Quarter: 2009Q2

REPORT INFORMATION
  Report Type: 
  Country: None (occurrence: None)
  Receive Date: 20090622
  Receipt Date: 20090609
  Transmission Date: 20091009
  Serious: Yes (Hospitalization)
  Sender: FDA-Public Use
  Company Number: FR-ELI_LILLY_AND_COMPANY-FR200906002369

PATIENT
  Age: 37 Year
  Sex: Female

DRUGS (5)
  1. CYMBALTA [Suspect]
     Indication: DEPRESSION
     Dosage: 60 MG, DAILY (1/D)
     Route: 048
     Dates: start: 20090321, end: 20090501
  2. XANAX [Concomitant]
     Indication: ANXIETY
     Route: 048
     Dates: start: 20090312, end: 20090430
  3. IMOVANE [Concomitant]
     Indication: INSOMNIA
     Route: 048
     Dates: start: 20090321
  4. STRESAM [Concomitant]
     Indication: DEPRESSION
     Route: 048
     Dates: start: 20090430, end: 20090512
  5. LOVAZA [Concomitant]
     Dates: start: 20090301

REACTIONS (4)
  - DYSARTHRIA [None]
  - PHYSICAL ASSAULT [None]
  - PSYCHOTIC DISORDER [None]
  - URTICARIA [None]
